FAERS Safety Report 5098783-3 (Version None)
Quarter: 2006Q3

REPORT INFORMATION
  Report Type: 
  Country: None (occurrence: None)
  Receive Date: 20060907
  Receipt Date: 20060814
  Transmission Date: 20061208
  Serious: Yes (Disabling, Other)
  Sender: FDA-Public Use
  Company Number: US-AMGEN-US189942

PATIENT
  Sex: Female

DRUGS (3)
  1. ENBREL [Suspect]
     Indication: PSORIATIC ARTHROPATHY
     Dates: start: 20010801
  2. VERAPAMIL [Concomitant]
  3. ADVIL [Concomitant]

REACTIONS (5)
  - BLINDNESS UNILATERAL [None]
  - HYPERTENSION [None]
  - INTRAOCULAR PRESSURE INCREASED [None]
  - RETINAL VEIN OCCLUSION [None]
  - VASCULITIS [None]
